FAERS Safety Report 8015418-8 (Version None)
Quarter: 2011Q4

REPORT INFORMATION
  Report Type: 
  Country: None (occurrence: None)
  Receive Date: 20111230
  Receipt Date: 20111222
  Transmission Date: 20120403
  Serious: Yes (Hospitalization)
  Sender: FDA-Public Use
  Company Number: NL-BRISTOL-MYERS SQUIBB COMPANY-16319691

PATIENT
  Age: 67 Year
  Sex: Male

DRUGS (5)
  1. METOCLOPRAMIDE [Concomitant]
  2. CISPLATIN [Suspect]
     Indication: NON-SMALL CELL LUNG CANCER
     Dosage: CUMULATIVE DOSE:154MG COURSE:4 RECENT DOSE:9OCT2009
     Route: 042
     Dates: start: 20090923
  3. KYTRIL [Concomitant]
  4. FLUTICASONE PROPIONATE/SALMETEROL [Concomitant]
  5. CETUXIMAB [Suspect]
     Indication: NON-SMALL CELL LUNG CANCER
     Dosage: CUMULATIVE DOSE:2160MG;COURSE:4; RECENT DOSE:07OCT2009
     Route: 042
     Dates: start: 20090917

REACTIONS (2)
  - PNEUMONIA PRIMARY ATYPICAL [None]
  - RESPIRATORY TRACT INFECTION [None]
